FAERS Safety Report 10404933 (Version 1)
Quarter: 2014Q3

REPORT INFORMATION
  Report Type: Spontaneous
  Country: US (occurrence: None)
  Receive Date: 20140819
  Receipt Date: 20140819
  Transmission Date: 20150326
  Serious: Yes (Hospitalization, Other)
  Sender: FDA-Public Use
  Company Number: None

PATIENT
  Age: 59 Year
  Sex: Female
  Weight: 68.04 kg

DRUGS (4)
  1. SYNTHROID [Concomitant]
     Active Substance: LEVOTHYROXINE SODIUM
  2. TRAMADOL [Concomitant]
     Active Substance: TRAMADOL
  3. EVISTA [Suspect]
     Active Substance: RALOXIFENE HYDROCHLORIDE
     Indication: BREAST CANCER
     Route: 048
     Dates: start: 201203, end: 201206
  4. NEURNTIN [Concomitant]

REACTIONS (1)
  - Colon cancer [None]

NARRATIVE: CASE EVENT DATE: 201306
